FAERS Safety Report 8574076-4 (Version None)
Quarter: 2012Q3

REPORT INFORMATION
  Report Type: 
  Country: None (occurrence: None)
  Receive Date: 20120806
  Receipt Date: 20120730
  Transmission Date: 20120928
  Serious: Yes (Other)
  Sender: FDA-Public Use
  Company Number: PHHY2012MX066960

PATIENT
  Age: 83 Year
  Sex: Female

DRUGS (1)
  1. RASILEZ [Suspect]
     Indication: HYPERTENSION
     Dosage: 1 DF A DAY
     Dates: start: 20110310

REACTIONS (4)
  - INFLAMMATION [None]
  - PAIN [None]
  - INJURY [None]
  - ARTERIAL RUPTURE [None]
